FAERS Safety Report 9337114 (Version 1)
Quarter: 2013Q2

REPORT INFORMATION
  Report Type: Spontaneous
  Country: US (occurrence: US)
  Receive Date: 20130607
  Receipt Date: 20130607
  Transmission Date: 20140414
  Serious: Yes (Other)
  Sender: FDA-Public Use
  Company Number: US-TEVA-409978USA

PATIENT
  Sex: Female

DRUGS (1)
  1. METOCLOPRAMIDE [Suspect]
     Dosage: 40 MILLIGRAM DAILY;

REACTIONS (6)
  - Tardive dyskinesia [Unknown]
  - Tremor [Unknown]
  - Pharyngeal oedema [Unknown]
  - Dysphagia [Unknown]
  - Weight decreased [Unknown]
  - Alopecia [Unknown]
